FAERS Safety Report 7498556-8 (Version None)
Quarter: 2011Q2

REPORT INFORMATION
  Report Type: 
  Country: None (occurrence: None)
  Receive Date: 20110516
  Receipt Date: 20110504
  Transmission Date: 20111010
  Serious: Yes (Death, Other)
  Sender: FDA-Public Use
  Company Number: 2011AP000898

PATIENT
  Age: 39 Year
  Sex: Female

DRUGS (2)
  1. SERTRALINE HYDROCHLORIDE [Suspect]
     Indication: ANXIETY
     Dosage: 50 MG, PO
     Route: 048
     Dates: start: 20110406, end: 20110408
  2. SERTRALINE HYDROCHLORIDE [Suspect]
     Indication: POSTPARTUM DEPRESSION
     Dosage: 50 MG, PO
     Route: 048
     Dates: start: 20110406, end: 20110408

REACTIONS (1)
  - COMPLETED SUICIDE [None]
